FAERS Safety Report 4772550-X (Version None)
Quarter: 2005Q3

REPORT INFORMATION
  Report Type: 
  Country: None (occurrence: None)
  Receive Date: 20050916
  Receipt Date: 20050916
  Transmission Date: 20060218
  Serious: Yes (Life-Threatening, Hospitalization)
  Sender: FDA-Public Use
  Company Number: None

PATIENT
  Age: 12 Year
  Sex: Male
  Weight: 64.8644 kg

DRUGS (3)
  1. ZITHROMAX [Suspect]
     Indication: INFLUENZA LIKE ILLNESS
     Dosage: 250 MG
     Dates: start: 20050902, end: 20050903
  2. ZITHROMAX [Suspect]
     Indication: PYREXIA
     Dosage: 250 MG
     Dates: start: 20050902, end: 20050903
  3. ZITHROMAX [Suspect]
     Indication: VOMITING
     Dosage: 250 MG
     Dates: start: 20050902, end: 20050903

REACTIONS (1)
  - STEVENS-JOHNSON SYNDROME [None]
